FAERS Safety Report 15300419 (Version 1)
Quarter: 2018Q3

REPORT INFORMATION
  Report Type: Spontaneous
  Country: US (occurrence: US)
  Receive Date: 20180821
  Receipt Date: 20180821
  Transmission Date: 20181010
  Serious: No
  Sender: FDA-Public Use
  Company Number: US-TEVA-806358ACC

PATIENT
  Sex: Female

DRUGS (1)
  1. APRI 28 [Suspect]
     Active Substance: DESOGESTREL\ETHINYL ESTRADIOL
     Dosage: DOSE STRENGTH:  0.15 MG/0.03MG

REACTIONS (1)
  - Acne [Unknown]
